FAERS Safety Report 7928371-X (Version None)
Quarter: 2011Q4

REPORT INFORMATION
  Report Type: 
  Country: None (occurrence: None)
  Receive Date: 20111118
  Receipt Date: 20111114
  Transmission Date: 20120403
  Serious: Yes (Other)
  Sender: FDA-Public Use
  Company Number: AU-JNJFOC-20111106792

PATIENT
  Sex: Female

DRUGS (8)
  1. STELARA [Suspect]
     Route: 058
     Dates: start: 20110710
  2. STELARA [Suspect]
     Route: 058
     Dates: start: 20111002
  3. DIFORMIN [Concomitant]
  4. STELARA [Suspect]
     Indication: PRODUCT USED FOR UNKNOWN INDICATION
     Route: 058
     Dates: start: 20101226
  5. STELARA [Suspect]
     Route: 058
     Dates: start: 20110123
  6. STELARA [Suspect]
     Route: 058
     Dates: start: 20110417
  7. ANTI-HYPERTENSIVE MEDICATION [Concomitant]
  8. GLYADE [Concomitant]

REACTIONS (1)
  - CELLULITIS [None]
